FAERS Safety Report 21447626 (Version 1)
Quarter: 2022Q4

REPORT INFORMATION
  Report Type: Report from Study
  Country: US (occurrence: None)
  Receive Date: 20221012
  Receipt Date: 20221012
  Transmission Date: 20230112
  Serious: Yes (Hospitalization)
  Sender: FDA-Public Use
  Company Number: US-Eisai Medical Research-EC-2022-125568

PATIENT
  Age: 62 Year
  Sex: Male
  Weight: 77 kg

DRUGS (14)
  1. LENVIMA [Suspect]
     Active Substance: LENVATINIB
     Indication: Renal cancer
     Route: 048
     Dates: start: 20220805, end: 202209
  2. LENVIMA [Suspect]
     Active Substance: LENVATINIB
     Indication: Metastases to central nervous system
  3. DULCOLAX NOS [Concomitant]
     Active Substance: BISACODYL OR DOCUSATE SODIUM
  4. FIBER LAXATIVE [Concomitant]
     Active Substance: CALCIUM POLYCARBOPHIL
  5. KEYTRUDA [Concomitant]
     Active Substance: PEMBROLIZUMAB
     Indication: Renal cancer
     Dosage: UNKNOWN DOSE
  6. KEYTRUDA [Concomitant]
     Active Substance: PEMBROLIZUMAB
     Indication: Metastases to central nervous system
  7. MIRALAX [Concomitant]
     Active Substance: POLYETHYLENE GLYCOL 3350
  8. FENTANYL [Concomitant]
     Active Substance: FENTANYL
  9. JARDIANCE [Concomitant]
     Active Substance: EMPAGLIFLOZIN
  10. MIRTAZAPINE [Concomitant]
     Active Substance: MIRTAZAPINE
  11. NORCO [Concomitant]
     Active Substance: ACETAMINOPHEN\HYDROCODONE BITARTRATE
  12. ONDANSETRON [Concomitant]
     Active Substance: ONDANSETRON
  13. OXYCONTIN [Concomitant]
     Active Substance: OXYCODONE HYDROCHLORIDE
  14. PROMETHAZINE [Concomitant]
     Active Substance: PROMETHAZINE HYDROCHLORIDE

REACTIONS (2)
  - Pulmonary fistula [Unknown]
  - Pneumothorax [Unknown]

NARRATIVE: CASE EVENT DATE: 20220926
